FAERS Safety Report 19768813 (Version 1)
Quarter: 2021Q3

REPORT INFORMATION
  Report Type: Spontaneous
  Country: GR (occurrence: GR)
  Receive Date: 20210831
  Receipt Date: 20210831
  Transmission Date: 20211014
  Serious: Yes (Hospitalization, Other)
  Sender: FDA-Public Use
  Company Number: GR-ACCORD-236702

PATIENT
  Age: 38 Year

DRUGS (7)
  1. CLOZAPINE. [Suspect]
     Active Substance: CLOZAPINE
     Indication: SCHIZOPHRENIA
     Dosage: EVERY 1 DAY
  2. CLOMIPRAMINE [Suspect]
     Active Substance: CLOMIPRAMINE
  3. HALOPERIDOL. [Suspect]
     Active Substance: HALOPERIDOL
  4. QUETIAPINE/QUETIAPINE FUMARATE [Suspect]
     Active Substance: QUETIAPINE FUMARATE
  5. AMISULPRIDE [Suspect]
     Active Substance: AMISULPRIDE
  6. VALPROIC ACID. [Suspect]
     Active Substance: VALPROIC ACID
  7. LORAZEPAM. [Suspect]
     Active Substance: LORAZEPAM

REACTIONS (4)
  - Pneumonia aspiration [Recovering/Resolving]
  - Loss of consciousness [Recovering/Resolving]
  - Depressed level of consciousness [Recovering/Resolving]
  - Toxicity to various agents [Unknown]
